FAERS Safety Report 7672913-9 (Version None)
Quarter: 2011Q3

REPORT INFORMATION
  Report Type: 
  Country: None (occurrence: None)
  Receive Date: 20110809
  Receipt Date: 20110727
  Transmission Date: 20111222
  Serious: Yes (Other)
  Sender: FDA-Public Use
  Company Number: US-AMGEN-USASP2011038252

PATIENT
  Sex: Male

DRUGS (1)
  1. ENBREL [Suspect]
     Indication: ANKYLOSING SPONDYLITIS
     Dosage: 50 MG, QWK

REACTIONS (19)
  - WHITE BLOOD CELL COUNT DECREASED [None]
  - RED BLOOD CELL SEDIMENTATION RATE INCREASED [None]
  - MONONUCLEOSIS HETEROPHILE TEST POSITIVE [None]
  - FEELING ABNORMAL [None]
  - WALKING AID USER [None]
  - ANAEMIA [None]
  - LYME DISEASE [None]
  - JOINT EFFUSION [None]
  - C-REACTIVE PROTEIN ABNORMAL [None]
  - ENDODONTIC PROCEDURE [None]
  - ARTHRALGIA [None]
  - BLOOD IMMUNOGLOBULIN M [None]
  - LIVER FUNCTION TEST ABNORMAL [None]
  - THROMBOCYTOPENIA [None]
  - CYTOMEGALOVIRUS TEST POSITIVE [None]
  - ARTHROPOD BITE [None]
  - SUTURE RELATED COMPLICATION [None]
  - LYMPHOCYTE MORPHOLOGY ABNORMAL [None]
  - INFECTION [None]
